FAERS Safety Report 24677066 (Version 1)
Quarter: 2024Q4

REPORT INFORMATION
  Report Type: Spontaneous
  Country: US (occurrence: US)
  Receive Date: 20241129
  Receipt Date: 20241129
  Transmission Date: 20250115
  Serious: No
  Sender: CIPLA
  Company Number: US-CIPLA LTD.-2024US03676

PATIENT

DRUGS (1)
  1. GABAPENTIN [Suspect]
     Active Substance: GABAPENTIN
     Indication: Neuropathy peripheral
     Dosage: 300 MILLIGRAM, BID (THE MORNING AND EVENING)
     Route: 065

REACTIONS (2)
  - Therapeutic response unexpected [Unknown]
  - Product label issue [Unknown]

NARRATIVE: CASE EVENT DATE: 20240401
